FAERS Safety Report 4303833-5 (Version None)
Quarter: 2004Q1

REPORT INFORMATION
  Report Type: 
  Country: None (occurrence: None)
  Receive Date: 20040219
  Receipt Date: 20040203
  Transmission Date: 20041129
  Serious: Yes (Death)
  Sender: FDA-Public Use
  Company Number: 601071

PATIENT
  Age: 52 Year
  Sex: Male
  Weight: 50 kg

DRUGS (4)
  1. TISSEEL VH KIT [Suspect]
     Indication: HEPATECTOMY
     Dosage: 5 CC;ONCE;INTRAHEPATIC
     Route: 025
     Dates: start: 20031211, end: 20031211
  2. NOVOSEVEN [Suspect]
     Indication: HAEMORRHAGE
     Dosage: INTRAVENOUS
     Route: 042
     Dates: start: 20031211, end: 20031211
  3. APROTININ [Suspect]
     Indication: HAEMORRHAGE
     Dosage: INTRAVENOUS
     Route: 042
     Dates: start: 20031211, end: 20031211
  4. BLOOD CELLS, PACKED HUMAN [Concomitant]

REACTIONS (7)
  - CARDIO-RESPIRATORY ARREST [None]
  - ELECTROMECHANICAL DISSOCIATION [None]
  - HAEMORRHAGE [None]
  - HYPOTENSION [None]
  - INTRACARDIAC THROMBUS [None]
  - PROCEDURAL COMPLICATION [None]
  - VENTRICULAR DYSFUNCTION [None]
